FAERS Safety Report 8237208-3 (Version None)
Quarter: 2012Q1

REPORT INFORMATION
  Report Type: 
  Country: None (occurrence: None)
  Receive Date: 20120327
  Receipt Date: 20120327
  Transmission Date: 20120608
  Serious: Yes (Hospitalization)
  Sender: FDA-Public Use
  Company Number: None

PATIENT
  Age: 6 Year
  Sex: Male
  Weight: 22.5 kg

DRUGS (8)
  1. ONCASPAR [Suspect]
     Indication: ACUTE LYMPHOCYTIC LEUKAEMIA RECURRENT
     Dosage: 2,175 UNITS
     Route: 042
     Dates: start: 20120227, end: 20120320
  2. FILGRASTIM [Concomitant]
  3. METHOTREXATE [Concomitant]
  4. PROPOFOL [Concomitant]
  5. CYTARABINE [Concomitant]
  6. HYDROCORTISONE [Concomitant]
  7. ONDANSETRON [Concomitant]
  8. VINCRISTINE [Concomitant]

REACTIONS (2)
  - FEBRILE NEUTROPENIA [None]
  - PANCREATITIS [None]
